FAERS Safety Report 11742114 (Version 9)
Quarter: 2018Q3

REPORT INFORMATION
  Report Type: Spontaneous
  Country: US (occurrence: US)
  Receive Date: 20151116
  Receipt Date: 20180927
  Transmission Date: 20181010
  Serious: Yes (Other)
  Sender: FDA-Public Use
  Company Number: US-PFIZER INC-2015375889

PATIENT
  Age: 77 Year
  Sex: Female
  Weight: 56.69 kg

DRUGS (16)
  1. LYRICA [Suspect]
     Active Substance: PREGABALIN
     Indication: FIBROMYALGIA
  2. ALENDRONATE SODIUM. [Concomitant]
     Active Substance: ALENDRONATE SODIUM
     Dosage: 70 MG, WEEKLY[TAKE ONE TABLET BY MOUTH 30 MINUTES BEFORE BREAKFAST EVERY WEEK]
     Route: 048
     Dates: start: 20131025
  3. VOLTAREN [Concomitant]
     Active Substance: DICLOFENAC SODIUM
     Dosage: 1 %, 1X/DAY [APPLY SPARINGLY TO AFFECTED AREA(S) ONCE DAILY]
     Dates: start: 20161005
  4. LYRICA [Suspect]
     Active Substance: PREGABALIN
     Indication: POST HERPETIC NEURALGIA
     Dosage: 600 MG, AS NEEDED
     Dates: start: 201508
  5. LYRICA [Suspect]
     Active Substance: PREGABALIN
     Indication: NEUROPATHY PERIPHERAL
     Dosage: 200 MG, 3X/DAY
     Route: 048
     Dates: start: 20140611
  6. LYRICA [Suspect]
     Active Substance: PREGABALIN
     Indication: PARTIAL SEIZURES
     Dosage: 200 MG, 3X/DAY
     Route: 048
  7. LYRICA [Suspect]
     Active Substance: PREGABALIN
     Indication: NEURALGIA
  8. ASPIRIN. [Concomitant]
     Active Substance: ASPIRIN
     Dosage: 81 MG, DAILY
     Dates: start: 20150619
  9. ATORVASTATIN CALCIUM. [Concomitant]
     Active Substance: ATORVASTATIN CALCIUM
     Dosage: 20 MG, DAILY [EVERY DAY]
     Route: 048
     Dates: start: 20150121
  10. LEVOTHYROXINE SODIUM. [Concomitant]
     Active Substance: LEVOTHYROXINE SODIUM
     Dosage: 75 UG, DAILY [EVERY DAY]
     Route: 048
     Dates: start: 20130930
  11. ADACEL TDAP [Concomitant]
     Active Substance: TETANUS TOXOID, REDUCED DIPHTHERIA TOXOID AND ACELLULAR PERTUSSIS VACCINE ADSORBED, TDAP
     Dosage: 0.5 ML, UNK
     Route: 030
     Dates: start: 20160504
  12. LYRICA [Suspect]
     Active Substance: PREGABALIN
     Indication: SPINAL CORD INJURY
  13. CLOPIDOGREL BISULFATE. [Concomitant]
     Active Substance: CLOPIDOGREL BISULFATE
     Dosage: 75 MG, 1X/DAY
     Route: 048
     Dates: start: 20141022
  14. AMLODIPINE BESYLATE AND VALSARTAN [Concomitant]
     Active Substance: AMLODIPINE BESYLATE\VALSARTAN
     Dosage: 1 DF, DAILY [AMLODIPINE BESILATE: 5 MG VALSARTAN: 160 MG]
     Route: 048
     Dates: start: 20150805
  15. CIPROFLOXACIN HCL [Concomitant]
     Active Substance: CIPROFLOXACIN HYDROCHLORIDE
     Dosage: 0.3 % [INSTILL 1?2 DROPS IN EYE(S)EVERY 2 HOURS WHILE AWAKE FOR 2 DAYS THEN EVERY 4HOURS FOR 5DAYS]
     Dates: start: 20160725
  16. LYRICA [Suspect]
     Active Substance: PREGABALIN
     Indication: DIABETIC NEUROPATHY
     Dosage: 400 MG, AS NEEDED
     Dates: start: 201507, end: 2015

REACTIONS (5)
  - Sleep disorder [Not Recovered/Not Resolved]
  - Neuropathy peripheral [Not Recovered/Not Resolved]
  - Drug effect incomplete [Not Recovered/Not Resolved]
  - Condition aggravated [Not Recovered/Not Resolved]
  - Prescribed overdose [Unknown]
